FAERS Safety Report 6494567-X (Version None)
Quarter: 2009Q4

REPORT INFORMATION
  Report Type: 
  Country: None (occurrence: None)
  Receive Date: 20091214
  Receipt Date: 20090304
  Transmission Date: 20100525
  Serious: No
  Sender: FDA-Public Use
  Company Number: US-BRISTOL-MYERS SQUIBB COMPANY-14529663

PATIENT
  Age: 44 Year
  Sex: Female
  Weight: 58 kg

DRUGS (9)
  1. ABILIFY [Suspect]
     Indication: DEPRESSION
     Dates: start: 20090101
  2. LEVAQUIN [Suspect]
     Indication: FOLLICULITIS
     Dates: start: 20090303
  3. LEXAPRO [Concomitant]
  4. TOPAMAX [Concomitant]
  5. KLONOPIN [Concomitant]
  6. PEPCID [Concomitant]
  7. FIORICET + CODEINE [Concomitant]
  8. MOTRIN [Concomitant]
  9. PHENERGAN HCL [Concomitant]

REACTIONS (3)
  - DYSARTHRIA [None]
  - FALL [None]
  - FEELING DRUNK [None]
